FAERS Safety Report 8086373-X (Version None)
Quarter: 2012Q1

REPORT INFORMATION
  Report Type: 
  Country: None (occurrence: None)
  Receive Date: 20120128
  Receipt Date: 20110506
  Transmission Date: 20120608
  Serious: No
  Sender: FDA-Public Use
  Company Number: US-ABBOTT-11P-163-0724684-00

PATIENT
  Sex: Female

DRUGS (8)
  1. FOLIC ACID [Concomitant]
     Indication: ADVERSE DRUG REACTION
  2. HUMIRA [Suspect]
     Indication: RHEUMATOID ARTHRITIS
     Dates: start: 20110419, end: 20110503
  3. PREDNISONE TAB [Concomitant]
     Indication: INFLAMMATION
  4. TRIAMETERENE HCTZ [Concomitant]
     Indication: HYPERTENSION
  5. TRICOR [Concomitant]
     Indication: BLOOD CHOLESTEROL INCREASED
  6. METHOTREXATE [Concomitant]
     Indication: INFLAMMATION
  7. CARDIZEM [Concomitant]
     Indication: HYPERTENSION
  8. METOPROLOL TARTRATE [Concomitant]
     Indication: HYPERTENSION

REACTIONS (3)
  - RASH [None]
  - PRURITUS [None]
  - URTICARIA [None]
